FAERS Safety Report 22197343 (Version 1)
Quarter: 2023Q2

REPORT INFORMATION
  Report Type: Spontaneous
  Country: US (occurrence: None)
  Receive Date: 20230411
  Receipt Date: 20230411
  Transmission Date: 20230722
  Serious: No
  Sender: FDA-Public Use
  Company Number: None

PATIENT
  Age: 78 Year
  Sex: Male
  Weight: 110.09 kg

DRUGS (8)
  1. INLYTA [Suspect]
     Active Substance: AXITINIB
     Indication: Renal cancer
     Dosage: FREQUENCY : TWICE A DAY;?
     Route: 048
     Dates: start: 202106
  2. AMLODIPINE [Concomitant]
  3. ASCORBIC ACID [Concomitant]
  4. VITAMIN B COMPLEX [Concomitant]
     Active Substance: CYANOCOBALAMIN\DEXPANTHENOL\NIACINAMIDE\PYRIDOXINE HYDROCHLORIDE\RIBOFLAVIN 5^-PHOSPHATE SODIUM\THIA
  5. ELIQUIS [Concomitant]
  6. ROSUVASTATIN [Concomitant]
  7. SYNTHROID [Concomitant]
  8. VITAMIN D [Concomitant]

REACTIONS (4)
  - Stomatitis [None]
  - Dysphonia [None]
  - Fatigue [None]
  - Carcinoid tumour pulmonary [None]
